FAERS Safety Report 8613164-0 (Version None)
Quarter: 2012Q3

REPORT INFORMATION
  Report Type: 
  Country: None (occurrence: None)
  Receive Date: 20120822
  Receipt Date: 20120801
  Transmission Date: 20120928
  Serious: Yes (Death, Life-Threatening)
  Sender: FDA-Public Use
  Company Number: JP-009507513-1208JPN001469

PATIENT

DRUGS (14)
  1. PREDNISOLONE [Concomitant]
     Dosage: DAIY DOSAGE UNKNOWN
     Route: 048
     Dates: start: 20100930, end: 20110501
  2. TEMODAL [Suspect]
     Indication: GLIOBLASTOMA MULTIFORME
     Dosage: DAIY DOSAGE UNKNOWN
     Route: 048
     Dates: start: 20100712, end: 20100810
  3. FAMOTIDINE [Concomitant]
     Dosage: DAIY DOSAGE UNKNOWN
     Route: 048
     Dates: end: 20110501
  4. ISOSORBIDE DINITRATE [Concomitant]
     Dosage: DAIY DOSAGE UNKNOWN
     Route: 048
     Dates: start: 20100903, end: 20110501
  5. TEMODAL [Suspect]
     Route: 041
     Dates: start: 20100906, end: 20100910
  6. BETAMETHASONE SODIUM PHOSPHATE [Concomitant]
     Dosage: DAIY DOSAGE UNKNOWN
     Route: 041
     Dates: start: 20110221, end: 20110228
  7. BETAMETHASONE [Concomitant]
     Dosage: DAIY DOSAGE UNKNOWN
     Route: 048
     Dates: start: 20100817, end: 20100930
  8. TEMODAL [Suspect]
     Dosage: DAIY DOSAGE UNKNOWN
     Route: 048
     Dates: start: 20100930
  9. GRANISETRON [Concomitant]
     Indication: PROPHYLAXIS
     Dosage: DAIY DOSAGE UNKNOWN
     Route: 042
     Dates: start: 20100906, end: 20100910
  10. INTERFERON BETA NOS [Concomitant]
     Dosage: DAIY DOSAGE UNKNOWN
     Route: 041
     Dates: start: 20101014, end: 20110203
  11. GLYMACKEN [Concomitant]
     Dosage: DAIY DOSAGE UNKNOWN
     Route: 041
     Dates: start: 20110221, end: 20110314
  12. MAGMITT [Concomitant]
     Dosage: DAIY DOSAGE UNKNOWN
     Route: 048
  13. [THERAPY UNSPECIFIED] [Concomitant]
     Dosage: DAIY DOSAGE UNKNOWN
     Route: 048
     Dates: start: 20100811, end: 20110407
  14. [THERAPY UNSPECIFIED] [Concomitant]
     Dosage: DAIY DOSAGE UNKNOWN
     Route: 048
     Dates: start: 20100903, end: 20101222

REACTIONS (8)
  - PNEUMONIA [None]
  - NASOPHARYNGITIS [None]
  - CONSTIPATION [None]
  - C-REACTIVE PROTEIN INCREASED [None]
  - HEPATIC FUNCTION ABNORMAL [None]
  - DISEASE PROGRESSION [None]
  - VOMITING [None]
  - HERPES ZOSTER [None]
